FAERS Safety Report 11037599 (Version 1)
Quarter: 2015Q2

REPORT INFORMATION
  Report Type: Spontaneous
  Country: GB (occurrence: GB)
  Receive Date: 20150416
  Receipt Date: 20150416
  Transmission Date: 20150821
  Serious: Yes (Other)
  Sender: FDA-Public Use
  Company Number: GB-TEVA-554700ACC

PATIENT
  Age: 1 Month
  Sex: Female
  Weight: 5.5 kg

DRUGS (5)
  1. DIAZOXIDE [Concomitant]
     Active Substance: DIAZOXIDE
     Dates: start: 20150214
  2. GAVISCON INFANT [Concomitant]
     Dates: start: 20150313
  3. CHLOROTHIAZIDE. [Concomitant]
     Active Substance: CHLOROTHIAZIDE
     Dates: start: 20150214
  4. NUTRITIONAL SUPPLEMENT [Concomitant]
     Active Substance: DIETARY SUPPLEMENT
     Dates: start: 20150218
  5. TRIMETHOPRIM. [Suspect]
     Active Substance: TRIMETHOPRIM
     Indication: URINARY TRACT INFECTION
     Dosage: 7.5 ML DAILY;
     Route: 048
     Dates: start: 20150314, end: 20150320

REACTIONS (4)
  - Vomiting [Recovered/Resolved]
  - Lethargy [Recovered/Resolved]
  - Blood glucose decreased [Recovered/Resolved]
  - Abnormal behaviour [Recovered/Resolved]

NARRATIVE: CASE EVENT DATE: 20150314
